FAERS Safety Report 10509430 (Version 2)
Quarter: 2014Q4

REPORT INFORMATION
  Report Type: Spontaneous
  Country: JP (occurrence: JP)
  Receive Date: 20141009
  Receipt Date: 20141029
  Transmission Date: 20150528
  Serious: Yes (Death, Life-Threatening, Other)
  Sender: FDA-Public Use
  Company Number: JP-JNJFOC-20141001731

PATIENT
  Age: 65 Year
  Sex: Male
  Weight: 55 kg

DRUGS (9)
  1. XEPLION [Suspect]
     Active Substance: PALIPERIDONE PALMITATE
     Indication: SCHIZOPHRENIA
     Route: 030
     Dates: start: 20140703, end: 20140731
  2. LONASEN [Concomitant]
     Active Substance: BLONANSERIN
     Indication: SCHIZOPHRENIA
     Route: 048
     Dates: start: 20130920, end: 20140710
  3. FLUNITRAZEPAM [Concomitant]
     Active Substance: FLUNITRAZEPAM
     Indication: INSOMNIA
     Route: 065
     Dates: start: 20110920, end: 20140714
  4. DIMETICONE [Concomitant]
     Active Substance: DIMETHICONE
     Indication: ABDOMINAL SYMPTOM
     Route: 048
     Dates: start: 20090407, end: 20140717
  5. IRRIBOW [Concomitant]
     Active Substance: RAMOSETRON HYDROCHLORIDE
     Indication: ABDOMINAL SYMPTOM
     Route: 048
     Dates: start: 20130822, end: 20140717
  6. INVEGA [Concomitant]
     Active Substance: PALIPERIDONE
     Indication: SCHIZOPHRENIA
     Route: 048
  7. XEPLION [Suspect]
     Active Substance: PALIPERIDONE PALMITATE
     Indication: SCHIZOPHRENIA
     Route: 030
     Dates: start: 2014, end: 2014
  8. SEDIEL [Concomitant]
     Active Substance: TANDOSPIRONE
     Indication: PSYCHOSOMATIC DISEASE
     Route: 048
     Dates: start: 20140501, end: 20140820
  9. ABILIFY [Suspect]
     Active Substance: ARIPIPRAZOLE
     Indication: SCHIZOPHRENIA
     Route: 048
     Dates: start: 20140626, end: 20140916

REACTIONS (11)
  - Platelet count decreased [Unknown]
  - Hypotension [Unknown]
  - Cachexia [Unknown]
  - Multi-organ failure [Fatal]
  - Cerebral atrophy [Fatal]
  - Hyponatraemia [Fatal]
  - Altered state of consciousness [Fatal]
  - Muscular weakness [Unknown]
  - Lymphocyte count decreased [Unknown]
  - Hypothermia [Unknown]
  - Abasia [Unknown]

NARRATIVE: CASE EVENT DATE: 20140717
